FAERS Safety Report 10399742 (Version 2)
Quarter: 2015Q4

REPORT INFORMATION
  Report Type: Spontaneous
  Country: US (occurrence: None)
  Receive Date: 20130815
  Receipt Date: 20151110
  Transmission Date: 20160304
  Serious: Yes (Hospitalization, Other)
  Sender: FDA-Public Use
  Company Number: ADR-2012-00051

PATIENT
  Sex: Female

DRUGS (1)
  1. BACLOFEN INTRATHECAL(BACLOFEN INJECTION) 500 MCG/ML [Suspect]
     Active Substance: BACLOFEN
     Indication: MUSCLE SPASTICITY
     Dosage: 73.94 MCG/DAY

REACTIONS (5)
  - Hypertonia [None]
  - Muscle spasticity [None]
  - Therapeutic response decreased [None]
  - Post lumbar puncture syndrome [None]
  - Musculoskeletal stiffness [None]
